FAERS Safety Report 5946426-6 (Version None)
Quarter: 2008Q4

REPORT INFORMATION
  Report Type: 
  Country: None (occurrence: None)
  Receive Date: 20081110
  Receipt Date: 20081107
  Transmission Date: 20090506
  Serious: Yes (Other)
  Sender: FDA-Public Use
  Company Number: A0755173A

PATIENT
  Sex: Female

DRUGS (2)
  1. ALLI [Suspect]
     Indication: DRUG USE FOR UNKNOWN INDICATION
     Route: 048
  2. NONE [Concomitant]

REACTIONS (5)
  - DIARRHOEA [None]
  - FLATULENCE [None]
  - GASTROINTESTINAL PAIN [None]
  - HAEMATOCHEZIA [None]
  - RECTAL HAEMORRHAGE [None]
